FAERS Safety Report 10021522 (Version 1)
Quarter: 2014Q1

REPORT INFORMATION
  Report Type: Spontaneous
  Country: US (occurrence: None)
  Receive Date: 20140318
  Receipt Date: 20140318
  Transmission Date: 20141002
  Serious: Yes (Disabling)
  Sender: FDA-Public Use
  Company Number: None

PATIENT
  Age: 62 Year
  Sex: Male
  Weight: 70.31 kg

DRUGS (11)
  1. LEVAQUIN [Suspect]
     Indication: URINARY TRACT INFECTION
     Dosage: 500 MG X 7
     Route: 048
     Dates: start: 20131231, end: 20140103
  2. LEVAQUIN [Suspect]
     Indication: LUNG INFECTION
     Dosage: 500 MG X 7
     Route: 048
     Dates: start: 20131231, end: 20140103
  3. DICLOFENAC [Concomitant]
  4. OMEPRAZOLE [Concomitant]
  5. CICLOPIROX [Concomitant]
  6. ASPIRIN [Concomitant]
  7. GLUCOSAMINE/MSM [Concomitant]
  8. FISH OIL [Concomitant]
  9. B COMPLEX [Concomitant]
  10. ER LONG ZU [Concomitant]
  11. QIAN LIE SHU PIAN [Concomitant]

REACTIONS (3)
  - Tinnitus [None]
  - Tendon disorder [None]
  - Tendon pain [None]
